FAERS Safety Report 9379961 (Version 1)
Quarter: 2013Q2

REPORT INFORMATION
  Report Type: Spontaneous
  Country: US (occurrence: None)
  Receive Date: 20130627
  Receipt Date: 20130627
  Transmission Date: 20140414
  Serious: Yes (Other)
  Sender: FDA-Public Use
  Company Number: TIR-02188

PATIENT
  Age: 70 Year
  Sex: Female
  Weight: 72.58 kg

DRUGS (3)
  1. TIROSINT [Suspect]
     Indication: HYPOTHYROIDISM
     Dates: start: 2013
  2. TIROSINT [Suspect]
     Indication: AUTOIMMUNE THYROIDITIS
     Dates: start: 2013
  3. COREG (CARVEDILOL PHOSPHATE) [Concomitant]

REACTIONS (4)
  - Abasia [None]
  - Ear disorder [None]
  - Meniere^s disease [None]
  - Dizziness [None]
